FAERS Safety Report 9500073 (Version 1)
Quarter: 2013Q3

REPORT INFORMATION
  Report Type: Spontaneous
  Country: MX (occurrence: MX)
  Receive Date: 20130905
  Receipt Date: 20130905
  Transmission Date: 20140515
  Serious: Yes (Other)
  Sender: FDA-Public Use
  Company Number: PHHY2013MX096811

PATIENT
  Age: 82 Year
  Sex: Female

DRUGS (2)
  1. EXFORGE HCT [Suspect]
     Indication: HYPERTENSION
     Dosage: 1 DF, (320/10/25 MG) DAILY
     Route: 048
     Dates: start: 201305, end: 201307
  2. EXFORGE HCT [Suspect]
     Dosage: 0.5 DF, (160/5/12.5 MG) DAILY
     Route: 048
     Dates: start: 201307

REACTIONS (5)
  - Cholelithiasis [Recovered/Resolved]
  - Cholecystitis infective [Recovered/Resolved]
  - Hypotension [Recovered/Resolved]
  - Blood pressure inadequately controlled [Recovered/Resolved]
  - Wrong technique in drug usage process [Not Recovered/Not Resolved]
